FAERS Safety Report 7955779-9 (Version None)
Quarter: 2011Q4

REPORT INFORMATION
  Report Type: 
  Country: None (occurrence: None)
  Receive Date: 20111205
  Receipt Date: 20111128
  Transmission Date: 20120403
  Serious: Yes (Other)
  Sender: FDA-Public Use
  Company Number: GB-BRISTOL-MYERS SQUIBB COMPANY-16255168

PATIENT
  Sex: Male

DRUGS (1)
  1. HYDREA [Suspect]
     Dosage: 1DF=1 CAPS DAILY
     Route: 048

REACTIONS (1)
  - CEREBROVASCULAR ACCIDENT [None]
